FAERS Safety Report 23322186 (Version 1)
Quarter: 2023Q4

REPORT INFORMATION
  Report Type: Spontaneous
  Country: GB (occurrence: GB)
  Receive Date: 20231220
  Receipt Date: 20231220
  Transmission Date: 20240109
  Serious: Yes (Other)
  Sender: FDA-Public Use
  Company Number: None

PATIENT
  Age: 35 Year
  Weight: 95 kg

DRUGS (2)
  1. LIDOCAINE [Suspect]
     Active Substance: LIDOCAINE
     Indication: Tattoo
     Dosage: DURATION: 1 DAY
     Route: 065
     Dates: start: 20231201, end: 20231201
  2. PRILOCAINE [Suspect]
     Active Substance: PRILOCAINE
     Indication: Tattoo
     Dosage: DURATION: 1 DAY
     Route: 065
     Dates: start: 20231201, end: 20231201

REACTIONS (2)
  - Pruritus [Not Recovered/Not Resolved]
  - Skin burning sensation [Not Recovered/Not Resolved]

NARRATIVE: CASE EVENT DATE: 20231201
